FAERS Safety Report 4784886-7 (Version None)
Quarter: 2005Q3

REPORT INFORMATION
  Report Type: 
  Country: None (occurrence: None)
  Receive Date: 20050928
  Receipt Date: 20050916
  Transmission Date: 20060218
  Serious: Yes (Death, Hospitalization, Other)
  Sender: FDA-Public Use
  Company Number: 2005130943

PATIENT
  Sex: Male
  Weight: 108.8633 kg

DRUGS (10)
  1. CELEBREX [Suspect]
     Indication: BACK PAIN
     Dosage: 200 MG (200 MG, 1 IN 1 D), ORAL
     Route: 048
  2. BEXTRA [Suspect]
     Indication: BACK PAIN
     Dosage: 10 MG (10 MG, 1 IN 1 D), ORAL
     Route: 048
  3. DOXAZOSIN MESYLATE [Concomitant]
  4. LISINOPRIL [Concomitant]
  5. HYDROCHLOROTHIAZIDE [Concomitant]
  6. VITAMIN E [Concomitant]
  7. VITAMIN C (VITAMIN C) [Concomitant]
  8. VITAMIN B12 [Concomitant]
  9. VITAMIN B6 (VITAMIN B6) [Concomitant]
  10. OMEGA 3 (FISH OIL) [Concomitant]

REACTIONS (6)
  - DIZZINESS [None]
  - DYSPNOEA [None]
  - FALL [None]
  - GLUCOSE TOLERANCE IMPAIRED [None]
  - INFLUENZA [None]
  - MYOCARDIAL INFARCTION [None]
